FAERS Safety Report 19889500 (Version 1)
Quarter: 2021Q3

REPORT INFORMATION
  Report Type: Spontaneous
  Country: GB (occurrence: GB)
  Receive Date: 20210927
  Receipt Date: 20210927
  Transmission Date: 20211014
  Serious: Yes (Other)
  Sender: FDA-Public Use
  Company Number: GB-TEVA-2021-GB-1957170

PATIENT
  Age: 34 Year
  Sex: Female
  Weight: 74 kg

DRUGS (11)
  1. CLARITHROMYCIN. [Suspect]
     Active Substance: CLARITHROMYCIN
     Dosage: 1000 MILLIGRAM DAILY; 500MG
     Route: 065
     Dates: start: 20210831, end: 20210907
  2. EMULSIFYING WAX [Concomitant]
     Dosage: USE AS DIRECTED
     Dates: start: 20200618
  3. FOSTAIR [Concomitant]
     Active Substance: BECLOMETHASONE\FORMOTEROL
     Indication: ASTHMA
     Dosage: 2 DOSAGE FORMS DAILY; 1DF
     Dates: start: 20201118
  4. ACICLOVIR [Concomitant]
     Active Substance: ACYCLOVIR
     Dosage: 3 DOSAGE FORMS DAILY; DAILY FOR 5 DAYS, 1DF
     Dates: start: 20210730, end: 20210804
  5. HYDROCORTISONE. [Concomitant]
     Active Substance: HYDROCORTISONE
     Dosage: APPLY THINLY, AVOID USING ON FACE.
     Dates: start: 20210219
  6. SALBUTAMOL [Concomitant]
     Active Substance: ALBUTEROL
     Dosage: 2DF
     Dates: start: 20201118
  7. SYNALAR [Concomitant]
     Active Substance: FLUOCINOLONE ACETONIDE
     Dosage: DAILY APPLICATION FOR 2 WEEK BURST FOR FLARES
     Dates: start: 20190325
  8. TRIMOVATE [Concomitant]
     Active Substance: CLOBETASONE BUTYRATE\NYSTATIN\OXYTETRACYCLINE CALCIUM
     Dosage: TO FACE FOR 1 WEEK BURSTS, 1DF
     Dates: start: 20190325
  9. DOUBLEBASE [Concomitant]
     Active Substance: ISOPROPYL MYRISTATE\PARAFFIN
     Dates: start: 20210823
  10. CLOTRIMAZOLE. [Concomitant]
     Active Substance: CLOTRIMAZOLE
     Dosage: 2 DOSAGE FORMS DAILY; 1DF
     Dates: start: 20210622, end: 20210706
  11. KETOCONAZOLE. [Concomitant]
     Active Substance: KETOCONAZOLE
     Dosage: SHAMPOO AND LEAVE ON FOR 5 MINS  APPLY WEEKLY
     Dates: start: 20191212

REACTIONS (1)
  - Swelling of eyelid [Recovered/Resolved]

NARRATIVE: CASE EVENT DATE: 20210908
